FAERS Safety Report 4569312-5 (Version None)
Quarter: 2005Q1

REPORT INFORMATION
  Report Type: 
  Country: None (occurrence: None)
  Receive Date: 20050201
  Receipt Date: 20050120
  Transmission Date: 20050727
  Serious: Yes (Hospitalization, Other)
  Sender: FDA-Public Use
  Company Number: 2005016486

PATIENT
  Sex: Female
  Weight: 136.0791 kg

DRUGS (1)
  1. NEURONTIN [Suspect]
     Indication: DEPRESSION

REACTIONS (3)
  - DEPRESSION [None]
  - SUICIDAL IDEATION [None]
  - WEIGHT DECREASED [None]
